FAERS Safety Report 19678227 (Version 2)
Quarter: 2021Q3

REPORT INFORMATION
  Report Type: Spontaneous
  Country: IN (occurrence: IN)
  Receive Date: 20210810
  Receipt Date: 20210824
  Transmission Date: 20211014
  Serious: Yes (Death)
  Sender: FDA-Public Use
  Company Number: IN-LUPIN PHARMACEUTICALS INC.-2021-13774

PATIENT

DRUGS (5)
  1. NICARDIA [Concomitant]
     Active Substance: NIFEDIPINE
     Indication: PRODUCT USED FOR UNKNOWN INDICATION
     Dosage: 20 OR 40 MG
     Route: 065
  2. LUPIBOSE FILM C.TABS 62.5 MG [Suspect]
     Active Substance: BOSENTAN
     Indication: COUGH
     Dosage: UNK UNK, QD,1 OR 2 TABLETS PER DAY, FOR 4?5 YEARS
     Route: 048
  3. LOSAR [Concomitant]
     Indication: PRODUCT USED FOR UNKNOWN INDICATION
     Dosage: 50 MG
     Route: 065
  4. PANTOP D SR [Concomitant]
     Indication: PRODUCT USED FOR UNKNOWN INDICATION
     Dosage: UNK
     Route: 065
  5. CLOCIP [Concomitant]
     Indication: PRODUCT USED FOR UNKNOWN INDICATION
     Dosage: 75 MILLIGRAM SINCE 10?12 YEAR
     Route: 065

REACTIONS (1)
  - Pyrexia [Fatal]
